FAERS Safety Report 12590311 (Version 1)
Quarter: 2016Q3

REPORT INFORMATION
  Report Type: Report from Study
  Country: NZ (occurrence: NZ)
  Receive Date: 20160725
  Receipt Date: 20160725
  Transmission Date: 20161109
  Serious: Yes (Other)
  Sender: FDA-Public Use
  Company Number: NZ-ABBVIE-16P-118-1656809-00

PATIENT
  Age: 58 Year
  Sex: Female

DRUGS (6)
  1. RIBAVIRIN. [Suspect]
     Active Substance: RIBAVIRIN
     Route: 048
  2. NICOTINE. [Concomitant]
     Active Substance: NICOTINE
     Indication: PRODUCT USED FOR UNKNOWN INDICATION
  3. RIBAVIRIN. [Suspect]
     Active Substance: RIBAVIRIN
     Indication: HEPATITIS C
     Route: 048
  4. AMOXIL [Concomitant]
     Active Substance: AMOXICILLIN
     Indication: PRODUCT USED FOR UNKNOWN INDICATION
  5. VIEKIRA PAK [Suspect]
     Active Substance: DASABUVIR\OMBITASVIR\PARITAPREVIR\RITONAVIR
     Indication: HEPATITIS C
     Route: 048
  6. LOCOID [Concomitant]
     Active Substance: HYDROCORTISONE BUTYRATE
     Indication: PRODUCT USED FOR UNKNOWN INDICATION
     Dosage: USED SPARINGLY

REACTIONS (16)
  - Hot flush [Unknown]
  - Haemoglobin decreased [Unknown]
  - Lymphocytosis [Unknown]
  - Lower respiratory tract infection [Unknown]
  - Decreased appetite [Unknown]
  - Nausea [Unknown]
  - Skin lesion [Unknown]
  - Eczema [Unknown]
  - Anaemia [Unknown]
  - Sinusitis [Unknown]
  - Lymphoma [Unknown]
  - Cough [Unknown]
  - Fatigue [Unknown]
  - Insomnia [Unknown]
  - Eye infection [Unknown]
  - Dyspnoea [Unknown]
